FAERS Safety Report 12972361 (Version 1)
Quarter: 2016Q4

REPORT INFORMATION
  Report Type: Report from Study
  Country: US (occurrence: US)
  Receive Date: 20161124
  Receipt Date: 20161124
  Transmission Date: 20170207
  Serious: No
  Sender: FDA-Public Use
  Company Number: US-PROSTRAKAN-2016-US-0247

PATIENT

DRUGS (1)
  1. GRANISETRON [Suspect]
     Active Substance: GRANISETRON
     Indication: PROPHYLAXIS OF NAUSEA AND VOMITING
     Dosage: KEEP PATCH FOR 5 DAYS
     Route: 062

REACTIONS (6)
  - Product adhesion issue [Unknown]
  - Wrong technique in product usage process [Unknown]
  - Nausea [Recovering/Resolving]
  - Vomiting [Unknown]
  - Product quality issue [None]
  - Drug prescribing error [Unknown]
